FAERS Safety Report 10154658 (Version 1)
Quarter: 2014Q2

REPORT INFORMATION
  Report Type: Spontaneous
  Country: US (occurrence: None)
  Receive Date: 20140505
  Receipt Date: 20140505
  Transmission Date: 20141212
  Serious: Yes (Other)
  Sender: FDA-Public Use
  Company Number: None

PATIENT
  Sex: Male
  Weight: 58.6 kg

DRUGS (2)
  1. HYDROCORTISONE [Suspect]
     Indication: ADRENOGENITAL SYNDROME
     Route: 048
     Dates: start: 20080301, end: 20080709
  2. FLUDROCORTISONE [Concomitant]

REACTIONS (2)
  - Chest pain [None]
  - Product substitution issue [None]
